FAERS Safety Report 8973237 (Version 1)
Quarter: 2012Q4

REPORT INFORMATION
  Report Type: 
  Country: US (occurrence: US)
  Receive Date: 20121219
  Receipt Date: 20121219
  Transmission Date: 20130627
  Serious: Yes (Other)
  Sender: FDA-Public Use
  Company Number: US-SANOFI-AVENTIS-2012SA092291

PATIENT
  Age: 66 Year
  Sex: Female

DRUGS (4)
  1. FLUOROURACIL [Suspect]
     Indication: RECTAL CARCINOMA
     Route: 065
  2. OXALIPLATIN [Suspect]
     Indication: RECTAL CARCINOMA
     Route: 065
  3. FOLINIC ACID [Suspect]
     Indication: RECTAL CARCINOMA
     Route: 065
  4. BEVACIZUMAB [Suspect]
     Indication: RECTAL CARCINOMA
     Route: 065

REACTIONS (3)
  - Gastrointestinal perforation [Unknown]
  - Arthralgia [Unknown]
  - Gastrointestinal fistula [Unknown]
